FAERS Safety Report 6945685 (Version 9)
Quarter: 2013Q4

REPORT INFORMATION
  Report Type: Spontaneous
  Country: US (occurrence: US)
  Receive Date: 20090319
  Receipt Date: 20131114
  Transmission Date: 20140711
  Serious: Yes (Other)
  Sender: FDA-Public Use
  Company Number: PHEH2009US02559

PATIENT
  Sex: Male
  Weight: 74.38 kg

DRUGS (30)
  1. AREDIA [Suspect]
     Indication: PLASMA CELL MYELOMA
     Route: 042
     Dates: start: 19960604
  2. AREDIA [Suspect]
     Dosage: 90 MG, QMO
     Route: 042
     Dates: start: 19990712, end: 20020805
  3. ZOMETA [Suspect]
     Indication: BONE LESION
     Dosage: 4 MG, QMO
     Route: 042
     Dates: start: 20020206
  4. BIAXIN [Concomitant]
  5. THALIDOMIDE [Concomitant]
  6. DECADRON [Concomitant]
  7. INSULIN [Concomitant]
  8. PROCRIT [Concomitant]
  9. ALKERAN [Concomitant]
  10. DIAZEPAM [Concomitant]
  11. FAMOTIDINE [Concomitant]
  12. PROMETHAZINE [Concomitant]
  13. VELCADE [Concomitant]
  14. MORPHINE [Concomitant]
  15. DEXAMETHASONE [Concomitant]
  16. CYANOCOBALAMIN [Concomitant]
  17. MELPHALAN [Concomitant]
     Dosage: 4 MG, UNK
     Route: 048
  18. PROCHLORPERAZINE [Concomitant]
     Dosage: 10 MG, UNK
     Route: 048
  19. PAMIDRONATE DISODIUM [Concomitant]
     Dosage: 90 MG, UNK
  20. DEMEROL [Concomitant]
     Dosage: 50 MG, UNK
  21. REVLIMID [Concomitant]
     Dosage: 25 MG, UNK
     Dates: start: 20060417
  22. ROXANOL [Concomitant]
  23. FENTANYL [Concomitant]
  24. ACETAMINOPHEN [Concomitant]
     Dosage: 650 MG, UNK
  25. DIPHENHYDRAMINE HYDROCHLORIDE [Concomitant]
     Dosage: 25 MG, UNK
     Route: 048
     Dates: start: 20081210, end: 20090217
  26. WARFARIN [Concomitant]
     Dosage: 1 MG, UNK
     Route: 048
     Dates: start: 20080425, end: 20090217
  27. CEPHALEXIN [Concomitant]
     Dosage: 500 MG, UNK
     Route: 048
     Dates: start: 20070910, end: 20070920
  28. OXYCONTIN [Concomitant]
     Dosage: 20 MG, Q12H
     Route: 048
  29. TYLENOL [Concomitant]
     Dosage: 325 MG, UNK
     Route: 048
  30. MEPRON [Concomitant]

REACTIONS (48)
  - Osteoporosis [Unknown]
  - Osteolysis [Unknown]
  - Spinal compression fracture [Unknown]
  - Neuropathy peripheral [Unknown]
  - Lung disorder [Unknown]
  - Osteonecrosis of jaw [Unknown]
  - Injury [Unknown]
  - Pain [Unknown]
  - Anxiety [Unknown]
  - Anhedonia [Unknown]
  - Disability [Unknown]
  - Mastication disorder [Unknown]
  - Toothache [Unknown]
  - Pain in jaw [Unknown]
  - Tooth disorder [Unknown]
  - Gingival swelling [Unknown]
  - Stomatitis [Unknown]
  - Upper-airway cough syndrome [Unknown]
  - Dysphonia [Unknown]
  - Rhinitis allergic [Unknown]
  - Nasopharyngitis [Unknown]
  - Infected dermal cyst [Unknown]
  - Bone deformity [Unknown]
  - Dental caries [Unknown]
  - Loose tooth [Unknown]
  - Gingival erythema [Unknown]
  - Dyspnoea [Unknown]
  - Dysphagia [Unknown]
  - Cyst [Unknown]
  - Epistaxis [Recovered/Resolved]
  - Vision blurred [Unknown]
  - Presbyopia [Unknown]
  - Hypermetropia [Unknown]
  - Astigmatism [Unknown]
  - Night sweats [Unknown]
  - Posture abnormal [Unknown]
  - Central obesity [Unknown]
  - Cushingoid [Unknown]
  - Muscle atrophy [Unknown]
  - Dizziness [Unknown]
  - Balance disorder [Unknown]
  - Tinea infection [Unknown]
  - Haemorrhoids [Unknown]
  - Anal pruritus [Unknown]
  - Hypoaesthesia [Unknown]
  - Abdominal pain upper [Unknown]
  - Arthralgia [Unknown]
  - Musculoskeletal pain [Unknown]
